FAERS Safety Report 4854564-4 (Version None)
Quarter: 2005Q4

REPORT INFORMATION
  Report Type: 
  Country: None (occurrence: None)
  Receive Date: 20051215
  Receipt Date: 20020329
  Transmission Date: 20060501
  Serious: Yes (Other)
  Sender: FDA-Public Use
  Company Number: US-ROCHE-310222

PATIENT
  Age: 49 Year
  Sex: Female
  Weight: 70.8 kg

DRUGS (5)
  1. RIBAVIRIN [Suspect]
     Dosage: WITH FOOD.
     Route: 048
     Dates: start: 20020304, end: 20020326
  2. PEG-INTERFERON ALFA 2A (RO 25-8310) [Suspect]
     Route: 058
     Dates: start: 20020304
  3. COMBIVIR [Suspect]
     Indication: DRUG USE FOR UNKNOWN INDICATION
     Route: 065
     Dates: start: 19991015, end: 20020326
  4. NELFINAVIR [Concomitant]
     Dates: start: 19991015, end: 20020326
  5. IBUPROFEN [Concomitant]
     Dates: start: 20020304, end: 20020326

REACTIONS (2)
  - ABDOMINAL PAIN UPPER [None]
  - HYPERLACTACIDAEMIA [None]
